FAERS Safety Report 11249288 (Version 1)
Quarter: 2015Q3

REPORT INFORMATION
  Report Type: Spontaneous
  Country: US (occurrence: US)
  Receive Date: 20150708
  Receipt Date: 20150708
  Transmission Date: 20151125
  Serious: Yes (Other)
  Sender: FDA-Public Use
  Company Number: US-ELI_LILLY_AND_COMPANY-US201001001042

PATIENT
  Age: 50 Year
  Sex: Male

DRUGS (4)
  1. FOLIC ACID. [Concomitant]
     Active Substance: FOLIC ACID
  2. ANALGESICS [Concomitant]
     Active Substance: UNSPECIFIED INGREDIENT
  3. ALIMTA [Suspect]
     Active Substance: PEMETREXED DISODIUM
     Indication: HEAD AND NECK CANCER
     Dosage: 500 MG/M2, UNK
  4. VITAMIN B12 [Concomitant]
     Active Substance: CYANOCOBALAMIN

REACTIONS (2)
  - Malignant neoplasm progression [Not Recovered/Not Resolved]
  - Off label use [Unknown]
